FAERS Safety Report 20109983 (Version 1)
Quarter: 2021Q4

REPORT INFORMATION
  Report Type: Report from Study
  Country: NL (occurrence: NL)
  Receive Date: 20211124
  Receipt Date: 20211124
  Transmission Date: 20220303
  Serious: Yes (Other)
  Sender: FDA-Public Use
  Company Number: NL-VER-202100159

PATIENT
  Age: 82 Year
  Sex: Male

DRUGS (7)
  1. TRIPTORELIN PAMOATE [Suspect]
     Active Substance: TRIPTORELIN PAMOATE
     Indication: Product used for unknown indication
     Dosage: 22.5 MG (SOLV 2ML (1ST)) (22.5 MG,24 WK)
     Route: 030
     Dates: start: 20210511
  2. XGEVA [Concomitant]
     Active Substance: DENOSUMAB
     Route: 065
  3. CALCIUM/ VIT D [Concomitant]
     Dosage: 1000MG/ 880 IE
     Route: 065
  4. SOLIFENS [Concomitant]
     Route: 065
  5. BICALUTAMIDE [Concomitant]
     Active Substance: BICALUTAMIDE
     Route: 065
  6. PERINDOPRIL [Concomitant]
     Active Substance: PERINDOPRIL
     Route: 065
  7. PANTOPRAZOLE [Concomitant]
     Active Substance: PANTOPRAZOLE
     Route: 065

REACTIONS (1)
  - Atrial flutter [Recovered/Resolved]

NARRATIVE: CASE EVENT DATE: 20211024
